FAERS Safety Report 21746272 (Version 1)
Quarter: 2022Q4

REPORT INFORMATION
  Report Type: Report from Study
  Country: US (occurrence: US)
  Receive Date: 20221219
  Receipt Date: 20221219
  Transmission Date: 20230113
  Serious: No
  Sender: FDA-Public Use
  Company Number: US-ABBVIE-4238780

PATIENT
  Age: 67 Year
  Sex: Male

DRUGS (1)
  1. SKYRIZI [Suspect]
     Active Substance: RISANKIZUMAB-RZAA
     Indication: Psoriasis
     Dosage: FORM STRENGTH 150 MG??WEEK 0
     Route: 058
     Dates: start: 20221201, end: 20221201

REACTIONS (7)
  - Inflammation [Unknown]
  - Headache [Recovered/Resolved]
  - Skin disorder [Unknown]
  - Dry skin [Unknown]
  - Pruritus [Unknown]
  - Off label use [Unknown]
  - Skin exfoliation [Unknown]

NARRATIVE: CASE EVENT DATE: 20221201
